FAERS Safety Report 4744542-8 (Version None)
Quarter: 2005Q3

REPORT INFORMATION
  Report Type: 
  Country: None (occurrence: None)
  Receive Date: 20050812
  Receipt Date: 20050808
  Transmission Date: 20060218
  Serious: Yes (Other)
  Sender: FDA-Public Use
  Company Number: GB-ABBOTT-05P-167-0307865-00

PATIENT
  Age: 61 Year
  Sex: Male

DRUGS (1)
  1. CLARITHROMYCIN [Suspect]
     Indication: GASTRITIS
     Route: 048
     Dates: start: 20050621, end: 20050705

REACTIONS (6)
  - DYSGEUSIA [None]
  - GLOSSODYNIA [None]
  - JOINT SWELLING [None]
  - ORAL DISCOMFORT [None]
  - ORAL PAIN [None]
  - SKIN EXFOLIATION [None]
